FAERS Safety Report 11029608 (Version 3)
Quarter: 2015Q4

REPORT INFORMATION
  Report Type: Spontaneous
  Country: US (occurrence: US)
  Receive Date: 20150415
  Receipt Date: 20151002
  Transmission Date: 20160304
  Serious: Yes (Other)
  Sender: FDA-Public Use
  Company Number: US-ROCHE-1562462

PATIENT
  Age: 44 Year
  Sex: Male

DRUGS (1)
  1. AVASTIN [Suspect]
     Active Substance: BEVACIZUMAB
     Indication: DIABETIC RETINOPATHY
     Route: 050
     Dates: start: 20130412

REACTIONS (9)
  - Choroidal detachment [Recovered/Resolved]
  - Anxiety [Unknown]
  - Suspected transmission of an infectious agent via product [Unknown]
  - Uveitis [Recovering/Resolving]
  - Retinal detachment [Unknown]
  - Endophthalmitis [Unknown]
  - Eye infection [Unknown]
  - Lens dislocation [Unknown]
  - Blindness unilateral [Unknown]
